FAERS Safety Report 4667477-8 (Version None)
Quarter: 2005Q2

REPORT INFORMATION
  Report Type: 
  Country: None (occurrence: None)
  Receive Date: 20050519
  Receipt Date: 20050519
  Transmission Date: 20051028
  Serious: No
  Sender: FDA-Public Use
  Company Number: None

PATIENT
  Age: 72 Year
  Sex: Male
  Weight: 74.8435 kg

DRUGS (1)
  1. NIASPAN [Suspect]
     Dosage: 2 TABLETS   BEDTIME

REACTIONS (3)
  - HOT FLUSH [None]
  - INSOMNIA [None]
  - PRURITUS [None]
